FAERS Safety Report 8771586 (Version 1)
Quarter: 2012Q4

REPORT INFORMATION
  Report Type: 
  Country: BR (occurrence: BR)
  Receive Date: 20120907
  Receipt Date: 20120907
  Transmission Date: 20130627
  Serious: Yes (Other)
  Sender: FDA-Public Use
  Company Number: BR-PFIZER INC-2012214786

PATIENT
  Sex: Male

DRUGS (1)
  1. LYRICA [Suspect]
     Route: 048

REACTIONS (6)
  - Epistaxis [Unknown]
  - Epicondylitis [Unknown]
  - Musculoskeletal pain [Unknown]
  - Arthralgia [Unknown]
  - Impaired work ability [Unknown]
  - Pain [Unknown]
